FAERS Safety Report 21088492 (Version 1)
Quarter: 2022Q3

REPORT INFORMATION
  Report Type: Spontaneous
  Country: CN (occurrence: CN)
  Receive Date: 20220715
  Receipt Date: 20220715
  Transmission Date: 20221027
  Serious: Yes (Other)
  Sender: FDA-Public Use
  Company Number: CN-OTSUKA-2022_035932

PATIENT
  Age: 43 Year
  Sex: Male

DRUGS (1)
  1. SAMSCA [Suspect]
     Active Substance: TOLVAPTAN
     Indication: Hyponatraemia
     Dosage: 1 DF, QD (CONSUMING SAMSCA FOR 5 DAYS)
     Route: 065

REACTIONS (4)
  - Paralysis [Unknown]
  - Spinal column injury [Unknown]
  - Drug abuse [Unknown]
  - Thirst [Unknown]
